FAERS Safety Report 5070495-1 (Version None)
Quarter: 2006Q3

REPORT INFORMATION
  Report Type: 
  Country: None (occurrence: None)
  Receive Date: 20060804
  Receipt Date: 20060724
  Transmission Date: 20061208
  Serious: Yes (Other)
  Sender: FDA-Public Use
  Company Number: US-JNJFOC-20060606376

PATIENT
  Sex: Male
  Weight: 85.28 kg

DRUGS (5)
  1. REMICADE [Suspect]
     Route: 042
  2. REMICADE [Suspect]
     Indication: CROHN'S DISEASE
     Route: 042
  3. 6-MP [Concomitant]
  4. AZATHIOPRINE SODIUM [Concomitant]
  5. IMURAN [Concomitant]
     Indication: CROHN'S DISEASE

REACTIONS (1)
  - BLADDER CANCER RECURRENT [None]
